FAERS Safety Report 4282688-1 (Version None)
Quarter: 2004Q1

REPORT INFORMATION
  Report Type: 
  Country: None (occurrence: None)
  Receive Date: 20040130
  Receipt Date: 20030224
  Transmission Date: 20041129
  Serious: No
  Sender: FDA-Public Use
  Company Number: US-BRISTOL-MYERS SQUIBB COMPANY-12193702

PATIENT
  Age: 55 Year
  Sex: Male
  Weight: 63 kg

DRUGS (2)
  1. SERZONE [Suspect]
     Indication: DEPRESSION
     Dosage: GRADUAL INCREASE DOSE 50MG BID TO 200MG BID,3 MONTHS AGO. RESTARTED 20 OR 21-FEB-03 100MG BID.
     Route: 048
     Dates: start: 20021101
  2. CLONIDINE [Concomitant]

REACTIONS (4)
  - DYSPHAGIA [None]
  - EATING DISORDER [None]
  - MUSCLE SPASMS [None]
  - OESOPHAGEAL PAIN [None]
